FAERS Safety Report 14683344 (Version 6)
Quarter: 2018Q4

REPORT INFORMATION
  Report Type: Spontaneous
  Country: US (occurrence: US)
  Receive Date: 20180327
  Receipt Date: 20181227
  Transmission Date: 20190204
  Serious: Yes (Hospitalization, Other)
  Sender: FDA-Public Use
  Company Number: US-PFIZER INC-2018120787

PATIENT
  Age: 71 Year
  Sex: Female
  Weight: 54.88 kg

DRUGS (2)
  1. IBRANCE [Suspect]
     Active Substance: PALBOCICLIB
     Dosage: UNK, CYCLIC
     Dates: start: 20180510
  2. IBRANCE [Suspect]
     Active Substance: PALBOCICLIB
     Indication: NEOPLASM MALIGNANT
     Dosage: 125 MG, 1X/DAY, (IN THE MORNING WITH FOOD)
     Route: 048

REACTIONS (6)
  - Fungaemia [Unknown]
  - Renal failure [Unknown]
  - Feeling abnormal [Unknown]
  - Weight decreased [Unknown]
  - Decreased appetite [Unknown]
  - Neoplasm progression [Unknown]
